FAERS Safety Report 23703701 (Version 2)
Quarter: 2024Q2

REPORT INFORMATION
  Report Type: Report from Study
  Country: US (occurrence: US)
  Receive Date: 20240403
  Receipt Date: 20240429
  Transmission Date: 20240715
  Serious: Yes (Other)
  Sender: FDA-Public Use
  Company Number: US-MIRATI-MT2024PM06302

PATIENT
  Sex: Male

DRUGS (3)
  1. KRAZATI [Suspect]
     Active Substance: ADAGRASIB
     Indication: Colon cancer
     Dosage: 600 MG, BID
     Route: 048
     Dates: start: 20240307
  2. XANAX [Concomitant]
     Active Substance: ALPRAZOLAM
  3. ATIVAN [Concomitant]
     Active Substance: LORAZEPAM
     Dosage: 1 MG, BID
     Route: 048

REACTIONS (4)
  - Weight decreased [Unknown]
  - Dermatitis acneiform [Unknown]
  - Diarrhoea [Unknown]
  - Off label use [Unknown]

NARRATIVE: CASE EVENT DATE: 20240301
